FAERS Safety Report 5311554-5 (Version None)
Quarter: 2007Q2

REPORT INFORMATION
  Report Type: 
  Country: None (occurrence: None)
  Receive Date: 20070426
  Receipt Date: 20070426
  Transmission Date: 20071010
  Serious: Yes (Other)
  Sender: FDA-Public Use
  Company Number: None

PATIENT
  Age: 60 Year
  Sex: Male
  Weight: 82 kg

DRUGS (12)
  1. MOXIFLOXACIN HCL [Suspect]
     Indication: BRONCHITIS
     Dosage: 400 MG PO DAILY
     Route: 048
     Dates: start: 20061012, end: 20061109
  2. CHANTIX [Suspect]
     Indication: SMOKING CESSATION THERAPY
     Dates: start: 20061012, end: 20061114
  3. ALBUTEROL 5MG/ML SOL/INHALATION [Concomitant]
  4. LANOXIN [Concomitant]
  5. EPINEPHRINE (EPIPEN) [Concomitant]
  6. IPRATROPIUM BR INH SOLN [Concomitant]
  7. LEVALBUTEROL TART [Concomitant]
  8. LORATADINE [Concomitant]
  9. NITROGLYCERIN [Concomitant]
  10. POTASSIUM CHLORIDE EXT REL [Concomitant]
  11. RANITIDINE HCL [Concomitant]
  12. SIMVASTATIN [Concomitant]

REACTIONS (2)
  - DRUG ERUPTION [None]
  - URTICARIA [None]
